FAERS Safety Report 4442635-6 (Version None)
Quarter: 2004Q3

REPORT INFORMATION
  Report Type: 
  Country: None (occurrence: None)
  Receive Date: 20040903
  Receipt Date: 20040707
  Transmission Date: 20050211
  Serious: Yes (Other)
  Sender: FDA-Public Use
  Company Number: 2004UW10013

PATIENT
  Age: 72 Year
  Sex: Female
  Weight: 107.5025 kg

DRUGS (4)
  1. CRESTOR [Suspect]
     Indication: BLOOD CHOLESTEROL INCREASED
     Dosage: 10-20 MG DAILY
     Dates: start: 20030916, end: 20040402
  2. MECLIZINE [Concomitant]
  3. LASIX [Concomitant]
  4. IBUPROFEN [Concomitant]

REACTIONS (3)
  - ASTHENIA [None]
  - HYPOTONIA [None]
  - MYALGIA [None]
